FAERS Safety Report 18580054 (Version 1)
Quarter: 2020Q4

REPORT INFORMATION
  Report Type: Spontaneous
  Country: US (occurrence: US)
  Receive Date: 20201204
  Receipt Date: 20201204
  Transmission Date: 20210114
  Serious: No
  Sender: FDA-Public Use
  Company Number: US-BAYER-2020-248121

PATIENT
  Sex: Female

DRUGS (2)
  1. PHILLIPS^ FIBER GOOD GUMMIES [Suspect]
     Active Substance: INULIN
     Indication: NUTRITIONAL SUPPLEMENTATION
     Dosage: 1 OR 2
     Route: 048
     Dates: start: 202010, end: 202011
  2. MIRALAX [Suspect]
     Active Substance: POLYETHYLENE GLYCOL 3350
     Indication: GASTROINTESTINAL DISORDER
     Dosage: HALF OF WHITE SECTION
     Route: 048

REACTIONS (5)
  - Incorrect dose administered [Unknown]
  - Nausea [Unknown]
  - Intentional product use issue [Unknown]
  - Dyspepsia [Unknown]
  - Epigastric discomfort [Unknown]
